FAERS Safety Report 8565299-9 (Version None)
Quarter: 2012Q3

REPORT INFORMATION
  Report Type: 
  Country: None (occurrence: None)
  Receive Date: 20120803
  Receipt Date: 20120726
  Transmission Date: 20120928
  Serious: Yes (Death, Hospitalization)
  Sender: FDA-Public Use
  Company Number: US-MPIJNJ-2012-01394

PATIENT
  Sex: Male

DRUGS (3)
  1. CYTOXAN [Suspect]
     Indication: MULTIPLE MYELOMA
     Dosage: 1620 MG, CYCLIC
     Route: 042
     Dates: start: 20110908, end: 20110908
  2. VELCADE [Suspect]
     Indication: MULTIPLE MYELOMA
     Dosage: 2 MG, CYCLIC
     Route: 042
     Dates: start: 20110908, end: 20111005
  3. DEXAMETHASONE [Suspect]
     Indication: MULTIPLE MYELOMA
     Dosage: 40 MG, CYCLIC
     Route: 048
     Dates: start: 20110908, end: 20111013

REACTIONS (2)
  - DEATH [None]
  - BACK PAIN [None]
